FAERS Safety Report 16475292 (Version 1)
Quarter: 2019Q2

REPORT INFORMATION
  Report Type: Spontaneous
  Country: IT (occurrence: IT)
  Receive Date: 20190625
  Receipt Date: 20190625
  Transmission Date: 20190711
  Serious: Yes (Hospitalization)
  Sender: FDA-Public Use
  Company Number: PHHY2019IT140397

PATIENT
  Age: 48 Year
  Sex: Male

DRUGS (1)
  1. CLOMIPRAMINE [Suspect]
     Active Substance: CLOMIPRAMINE
     Indication: DEPRESSION
     Dosage: 75 MG, BID
     Route: 065

REACTIONS (7)
  - Dyspnoea [Recovering/Resolving]
  - Hypotension [Recovering/Resolving]
  - Palpitations [Recovering/Resolving]
  - Cardiac dysfunction [Recovering/Resolving]
  - Atrial fibrillation [Recovering/Resolving]
  - Hypersensitivity myocarditis [Recovering/Resolving]
  - Vasculitis necrotising [Recovering/Resolving]
